FAERS Safety Report 18598186 (Version 1)
Quarter: 2020Q4

REPORT INFORMATION
  Report Type: Spontaneous
  Country: US (occurrence: US)
  Receive Date: 20201210
  Receipt Date: 20201210
  Transmission Date: 20210114
  Serious: No
  Sender: FDA-Public Use
  Company Number: US-CELGENEUS-USA-20201200401

PATIENT
  Sex: Male
  Weight: 65.83 kg

DRUGS (2)
  1. REVLIMID [Suspect]
     Active Substance: LENALIDOMIDE
     Indication: B-CELL LYMPHOMA
     Dosage: 20 MILLIGRAM
     Route: 048
     Dates: start: 2020
  2. REVLIMID [Suspect]
     Active Substance: LENALIDOMIDE
     Indication: BASAL CELL CARCINOMA
     Dosage: 20 MILLIGRAM
     Route: 048
     Dates: start: 202010

REACTIONS (4)
  - Dehydration [Not Recovered/Not Resolved]
  - Hypophagia [Not Recovered/Not Resolved]
  - Constipation [Not Recovered/Not Resolved]
  - Renal disorder [Not Recovered/Not Resolved]

NARRATIVE: CASE EVENT DATE: 2020
